FAERS Safety Report 7264689-4 (Version None)
Quarter: 2011Q1

REPORT INFORMATION
  Report Type: 
  Country: None (occurrence: None)
  Receive Date: 20110131
  Receipt Date: 20110120
  Transmission Date: 20110831
  Serious: Yes (Disabling)
  Sender: FDA-Public Use
  Company Number: CA-JNJFOC-20100603157

PATIENT
  Sex: Female
  Weight: 64 kg

DRUGS (4)
  1. REMICADE [Suspect]
     Indication: CROHN'S DISEASE
     Route: 042
  2. IMURAN [Concomitant]
     Dosage: DOSE INCREASED PER PHYSICIAN
  3. PERCOCET [Concomitant]
     Indication: PAIN
  4. REMICADE [Suspect]
     Route: 042

REACTIONS (1)
  - EYE DISORDER [None]
